FAERS Safety Report 5729550-2 (Version None)
Quarter: 2008Q2

REPORT INFORMATION
  Report Type: 
  Country: None (occurrence: None)
  Receive Date: 20080501
  Receipt Date: 20080421
  Transmission Date: 20081010
  Serious: Yes (Other)
  Sender: FDA-Public Use
  Company Number: 2008S1006914

PATIENT
  Age: 23 Year
  Sex: Male

DRUGS (3)
  1. CLARAVIS [Suspect]
     Dosage: 40 MG; DAILY, 40 MG;TWICE A DAY
     Dates: start: 19271221, end: 20080122
  2. CLARAVIS [Suspect]
     Dosage: 40 MG; DAILY, 40 MG;TWICE A DAY
     Dates: start: 20080122, end: 20080404
  3. PHENYTEK [Suspect]
     Indication: CONVULSION

REACTIONS (2)
  - CONVULSION [None]
  - DRUG INTERACTION [None]
